FAERS Safety Report 15523656 (Version 3)
Quarter: 2018Q4

REPORT INFORMATION
  Report Type: Spontaneous
  Country: JP (occurrence: JP)
  Receive Date: 20181018
  Receipt Date: 20181212
  Transmission Date: 20190205
  Serious: Yes (Other)
  Sender: FDA-Public Use
  Company Number: JP-SUN PHARMACEUTICAL INDUSTRIES LTD-2018RR-188001

PATIENT
  Age: 21 Year
  Sex: Female

DRUGS (2)
  1. TEGRETOL [Suspect]
     Active Substance: CARBAMAZEPINE
     Indication: EPILEPTIC PSYCHOSIS
     Dosage: 400 MG, DAILY
     Route: 048
     Dates: start: 2017, end: 2017
  2. RISPERIDONE. [Suspect]
     Active Substance: RISPERIDONE
     Indication: EPILEPTIC PSYCHOSIS
     Dosage: 6 MG, DAILY
     Route: 065

REACTIONS (2)
  - Drug interaction [Unknown]
  - Antipsychotic drug level decreased [Recovered/Resolved]

NARRATIVE: CASE EVENT DATE: 2017
